FAERS Safety Report 12863685 (Version 1)
Quarter: 2016Q4

REPORT INFORMATION
  Report Type: Spontaneous
  Country: US (occurrence: US)
  Receive Date: 20161019
  Receipt Date: 20161019
  Transmission Date: 20170207
  Serious: Yes (Hospitalization, Other)
  Sender: FDA-Public Use
  Company Number: US-TEVA-703753USA

PATIENT
  Age: 57 Year

DRUGS (3)
  1. MK-3475 [Concomitant]
     Active Substance: PEMBROLIZUMAB
     Route: 042
     Dates: start: 20160720
  2. 1NCB024360 [Concomitant]
     Dosage: 200 MILLIGRAM DAILY;
     Route: 048
     Dates: start: 20160711
  3. AMLODIPINE [Suspect]
     Active Substance: AMLODIPINE BESYLATE
     Indication: HYPERTENSION
     Route: 065
     Dates: end: 20160714

REACTIONS (8)
  - Scrotal oedema [Recovered/Resolved]
  - Acute kidney injury [Unknown]
  - Dyspnoea [Not Recovered/Not Resolved]
  - Cellulitis of male external genital organ [Not Recovered/Not Resolved]
  - Renal impairment [Recovered/Resolved]
  - Pleural effusion [Recovered/Resolved]
  - Oedema [Not Recovered/Not Resolved]
  - Blood creatinine increased [Not Recovered/Not Resolved]

NARRATIVE: CASE EVENT DATE: 20160716
